FAERS Safety Report 6790214 (Version 3)
Quarter: 2013Q4

REPORT INFORMATION
  Report Type: Spontaneous
  Country: GB (occurrence: GB)
  Receive Date: 20081017
  Receipt Date: 20131009
  Transmission Date: 20140711
  Serious: Yes (Hospitalization, Other)
  Sender: FDA-Public Use
  Company Number: GB-JNJFOC-20081002024

PATIENT
  Age: 56 Year
  Sex: Male

DRUGS (13)
  1. HALOPERIDOL [Suspect]
     Indication: PRODUCT USED FOR UNKNOWN INDICATION
     Route: 058
  2. ALFENTANIL [Suspect]
     Indication: DRUG ABUSE
     Route: 058
  3. ALFENTANIL [Suspect]
     Indication: DRUG ABUSE
     Route: 058
  4. ALFENTANIL [Suspect]
     Indication: DRUG ABUSE
     Route: 058
  5. FENTANYL [Suspect]
     Indication: PAIN
     Route: 048
  6. GABAPENTIN [Suspect]
     Indication: PRODUCT USED FOR UNKNOWN INDICATION
     Route: 065
  7. MORPHINE [Suspect]
     Indication: ANALGESIC THERAPY
     Route: 065
  8. OXYCONTIN [Suspect]
     Indication: ANALGESIC THERAPY
     Route: 065
  9. PARACETAMOL [Suspect]
     Indication: ANALGESIC THERAPY
     Route: 065
  10. HYDROMORPHONE [Suspect]
     Indication: ANALGESIC THERAPY
     Dosage: 1MG BOLUSES AT 20 MINUTE INTERVALS; 3 DOSES REQUIRED FOR FULL RESOLUTION.
     Route: 058
  11. HYDROMORPHONE [Suspect]
     Indication: ANALGESIC THERAPY
     Route: 058
  12. HYDROMORPHONE [Suspect]
     Indication: ANALGESIC THERAPY
     Route: 058
  13. HYDROMORPHONE [Suspect]
     Indication: ANALGESIC THERAPY
     Route: 058

REACTIONS (6)
  - Back pain [Unknown]
  - Drug effect decreased [Unknown]
  - Drug withdrawal syndrome [Unknown]
  - Infection [Unknown]
  - Renal impairment [Unknown]
  - Toxicity to various agents [Recovered/Resolved]
